FAERS Safety Report 7348447-8 (Version None)
Quarter: 2011Q1

REPORT INFORMATION
  Report Type: 
  Country: None (occurrence: None)
  Receive Date: 20110311
  Receipt Date: 20110302
  Transmission Date: 20110831
  Serious: Yes (Hospitalization)
  Sender: FDA-Public Use
  Company Number: JP-AMGEN-JPNCT2011007129

PATIENT
  Age: 49 Year
  Sex: Male
  Weight: 65 kg

DRUGS (16)
  1. PANITUMUMAB [Suspect]
     Indication: COLORECTAL CANCER
     Dosage: 6 MG/KG, Q2WK
     Route: 041
     Dates: start: 20100825, end: 20101006
  2. CALCIUM LEVOFOLINATE [Suspect]
     Indication: COLORECTAL CANCER
     Route: 041
     Dates: start: 20100825
  3. CORTICOSTEROIDS [Concomitant]
     Indication: PROPHYLAXIS
     Dosage: UNK
     Route: 065
  4. DECADRON [Concomitant]
     Dosage: UNK
     Route: 042
  5. FAMOTIDINE D [Concomitant]
     Dosage: UNK
     Route: 048
  6. IRINOTECAN HYDROCHLORIDE [Suspect]
     Indication: COLORECTAL CANCER
     Route: 041
     Dates: start: 20100825
  7. FLUOROURACIL [Suspect]
     Route: 041
     Dates: start: 20100825
  8. MAINTATE [Concomitant]
     Dosage: UNK
     Route: 048
  9. PANITUMUMAB [Suspect]
     Dosage: 4.8 MG/KG, Q2WK
     Route: 041
     Dates: start: 20101027
  10. PANITUMUMAB [Suspect]
     Dosage: UNK
  11. FLUOROURACIL [Suspect]
     Indication: COLORECTAL CANCER
     Route: 040
     Dates: start: 20100825
  12. ANTIHISTAMINES [Concomitant]
     Route: 065
  13. EMEND [Concomitant]
     Dosage: UNK
     Route: 048
  14. BIOFERMIN [Concomitant]
     Dosage: UNK
     Route: 048
  15. ANTIHISTAMINES [Concomitant]
     Indication: PROPHYLAXIS
     Dosage: UNK
  16. GRANISETRON HCL [Concomitant]
     Dosage: UNK
     Route: 042

REACTIONS (4)
  - STOMATITIS [None]
  - METASTASES TO CENTRAL NERVOUS SYSTEM [None]
  - NEUTROPHIL COUNT DECREASED [None]
  - DERMATITIS ACNEIFORM [None]
